FAERS Safety Report 8357573-6 (Version None)
Quarter: 2012Q2

REPORT INFORMATION
  Report Type: 
  Country: None (occurrence: None)
  Receive Date: 20120514
  Receipt Date: 20120507
  Transmission Date: 20120825
  Serious: Yes (Death)
  Sender: FDA-Public Use
  Company Number: US-TEVA-336989USA

PATIENT
  Age: 1 Year
  Sex: Male
  Weight: 8.8 kg

DRUGS (5)
  1. METHOTREXATE [Suspect]
     Indication: ACUTE LYMPHOCYTIC LEUKAEMIA
     Dates: start: 20100930
  2. DEXAMETHASONE [Suspect]
     Indication: ACUTE LYMPHOCYTIC LEUKAEMIA
     Dates: start: 20100930
  3. MERCAPTOPURINE [Suspect]
     Indication: ACUTE LYMPHOCYTIC LEUKAEMIA
     Dates: start: 20100930
  4. LESTAURTINIB [Suspect]
  5. VINCRISTINE [Suspect]
     Indication: ACUTE LYMPHOCYTIC LEUKAEMIA
     Dates: start: 20100930

REACTIONS (11)
  - DIARRHOEA [None]
  - CYTOMEGALOVIRUS VIRAEMIA [None]
  - PNEUMOCYSTIS JIROVECI PNEUMONIA [None]
  - LUNG INFECTION [None]
  - PNEUMONIA CYTOMEGALOVIRAL [None]
  - PARAINFLUENZAE VIRUS INFECTION [None]
  - LOWER RESPIRATORY TRACT INFECTION VIRAL [None]
  - RESPIRATORY SYNCYTIAL VIRUS INFECTION [None]
  - FOOD INTOLERANCE [None]
  - VOMITING [None]
  - CYTOMEGALOVIRUS COLITIS [None]
